FAERS Safety Report 22346967 (Version 1)
Quarter: 2023Q2

REPORT INFORMATION
  Report Type: Spontaneous
  Country: GB (occurrence: GB)
  Receive Date: 20230520
  Receipt Date: 20230520
  Transmission Date: 20230721
  Serious: Yes (Other)
  Sender: FDA-Public Use
  Company Number: None

PATIENT
  Age: 64 Year
  Sex: Female
  Weight: 101.0 kg

DRUGS (3)
  1. PRAVASTATIN SODIUM [Suspect]
     Active Substance: PRAVASTATIN SODIUM
     Indication: Product used for unknown indication
     Dosage: STRENGTH:10MG
     Route: 048
     Dates: start: 20221220, end: 20230222
  2. BETNESOL-N [Concomitant]
     Dosage: BOTH EARS
     Dates: start: 20230505
  3. ESTRADIOL [Concomitant]
     Active Substance: ESTRADIOL
     Dosage: 37.5MCG/24 HOURS. NOVARTIS PHARMACEUTICALS, AS DIRECTED
     Dates: start: 20230405

REACTIONS (2)
  - Hallucination [Recovered/Resolved]
  - Anxiety [Not Recovered/Not Resolved]
